FAERS Safety Report 10045686 (Version 1)
Quarter: 2014Q1

REPORT INFORMATION
  Report Type: Spontaneous
  Country: US (occurrence: None)
  Receive Date: 20140306
  Receipt Date: 20140306
  Transmission Date: 20141002
  Serious: Yes (Life-Threatening)
  Sender: FDA-Public Use
  Company Number: 163-21880-13054977

PATIENT
  Age: 53 Year
  Sex: Male

DRUGS (14)
  1. REVLIMID (LENALIDOMIDE) (25 MILLIGRAM, CAPSULES) [Suspect]
     Indication: PLASMA CELL MYELOMA
     Route: 048
     Dates: start: 200903
  2. POTASSIUM CL (POTASSIUM CHLORIDE) [Concomitant]
  3. JANTOVEN (WARFARIN SODIUM) [Concomitant]
  4. OXYCONTIN (OXYCODONE HYDROCHLORIDE) [Concomitant]
  5. ZOFRAN (ONDANSETRON HYDROCHLORIDE) [Concomitant]
  6. REGLAN (METOCLOPRAMIDE) [Concomitant]
  7. COUMADIN (WARFARIN SODIUM) [Concomitant]
  8. PANTOPRAZOLE (PANTOPRAZOLE) [Concomitant]
  9. GABAPENTIN (GABAPENTIN) [Concomitant]
  10. METOCLOPRAMIDE (METOCLOPRAMIDE) [Concomitant]
  11. AZITHROMYCIN (AZITHROMYCIN) [Concomitant]
  12. ONDANSETRON (ONDANSETRON) [Concomitant]
  13. ALLOPURINOL (ALLOPURINOL) [Concomitant]
  14. TRIAMTERENE HCTZ (DYAZIDE) [Concomitant]

REACTIONS (1)
  - Pulmonary thrombosis [None]
